FAERS Safety Report 5861313-X (Version None)
Quarter: 2008Q3

REPORT INFORMATION
  Report Type: 
  Country: None (occurrence: None)
  Receive Date: 20080827
  Receipt Date: 20080415
  Transmission Date: 20090109
  Serious: No
  Sender: FDA-Public Use
  Company Number: US-ABBOTT-08P-163-0447627-00

PATIENT
  Sex: Male
  Weight: 77.18 kg

DRUGS (6)
  1. COATED PDS [Suspect]
     Indication: BLOOD CHOLESTEROL INCREASED
     Route: 048
     Dates: start: 20080301, end: 20080401
  2. COATED PDS [Suspect]
     Route: 048
     Dates: start: 20080401, end: 20080413
  3. COATED PDS [Suspect]
     Route: 048
     Dates: start: 20080414
  4. CADUET [Concomitant]
     Indication: BLOOD CHOLESTEROL INCREASED
     Route: 048
  5. ATENOLOL [Concomitant]
     Indication: HYPERTENSION
     Route: 048
  6. LURON [Concomitant]
     Indication: PROSTATE CANCER
     Route: 050
     Dates: start: 19980101

REACTIONS (2)
  - FLUSHING [None]
  - PRURITUS [None]
